FAERS Safety Report 13578737 (Version 1)
Quarter: 2017Q2

REPORT INFORMATION
  Report Type: Report from Study
  Country: US (occurrence: US)
  Receive Date: 20170524
  Receipt Date: 20170524
  Transmission Date: 20170830
  Serious: Yes (Other)
  Sender: FDA-Public Use
  Company Number: US-MYLANLABS-2017M1030686

PATIENT

DRUGS (1)
  1. CLOZAPINE. [Suspect]
     Active Substance: CLOZAPINE
     Indication: PRODUCT USED FOR UNKNOWN INDICATION
     Dosage: UNK

REACTIONS (11)
  - Seasonal allergy [Unknown]
  - White blood cell disorder [Unknown]
  - Essential hypertension [Unknown]
  - Hallucination [Unknown]
  - Attention deficit/hyperactivity disorder [Unknown]
  - Schizoaffective disorder [Unknown]
  - Craniocerebral injury [Unknown]
  - Organic brain syndrome [Unknown]
  - Psychotic disorder [Unknown]
  - Dental operation [Unknown]
  - Bronchitis [Unknown]
